FAERS Safety Report 21240255 (Version 1)
Quarter: 2022Q3

REPORT INFORMATION
  Report Type: Spontaneous
  Country: US (occurrence: None)
  Receive Date: 20220819
  Receipt Date: 20220819
  Transmission Date: 20221027
  Serious: Yes (Hospitalization)
  Sender: FDA-Public Use
  Company Number: None

PATIENT
  Sex: Male

DRUGS (1)
  1. DROXIDOPA [Suspect]
     Active Substance: DROXIDOPA
     Indication: Autonomic neuropathy
     Dosage: 300 MG ORAL??TAKE 1 CAPSULE BY MOUTH ONCE PER DAY
     Route: 048
     Dates: start: 20210318

REACTIONS (1)
  - Therapy interrupted [None]
